FAERS Safety Report 6568398-6 (Version None)
Quarter: 2010Q1

REPORT INFORMATION
  Report Type: 
  Country: None (occurrence: None)
  Receive Date: 20100203
  Receipt Date: 20100129
  Transmission Date: 20100710
  Serious: Yes (Death, Life-Threatening, Hospitalization)
  Sender: FDA-Public Use
  Company Number: SE-CELGENEUS-150-C5013-10011004

PATIENT
  Sex: Male
  Weight: 68.4 kg

DRUGS (17)
  1. CC-5013 [Suspect]
     Indication: MANTLE CELL LYMPHOMA
     Route: 048
     Dates: start: 20100111, end: 20100115
  2. CYTARABINE [Suspect]
     Indication: MANTLE CELL LYMPHOMA
     Route: 065
     Dates: start: 20100118
  3. MOVICOL [Concomitant]
     Indication: CONSTIPATION
     Route: 048
     Dates: start: 20100109
  4. PREDNISOLONE [Concomitant]
     Indication: LYMPHOMA
     Route: 048
     Dates: start: 20091229, end: 20100115
  5. ALLOPURINOL [Concomitant]
     Indication: PROPHYLAXIS
     Route: 048
     Dates: start: 20091229
  6. DIMETIKON [Concomitant]
     Indication: FLATULENCE
     Route: 048
     Dates: start: 20100112
  7. CILAXORAL [Concomitant]
     Indication: DRUG USE FOR UNKNOWN INDICATION
     Route: 048
  8. DOLCONTIN [Concomitant]
     Indication: DRUG USE FOR UNKNOWN INDICATION
     Route: 048
  9. SAGMAN [Concomitant]
     Indication: DRUG USE FOR UNKNOWN INDICATION
     Route: 065
  10. OLICLINOMEL N6-900E [Concomitant]
     Indication: DRUG USE FOR UNKNOWN INDICATION
     Route: 051
  11. VITALIPID [Concomitant]
     Indication: DRUG USE FOR UNKNOWN INDICATION
     Route: 051
  12. SOLUVIT [Concomitant]
     Indication: DRUG USE FOR UNKNOWN INDICATION
     Route: 051
  13. TRACEL [Concomitant]
     Indication: DRUG USE FOR UNKNOWN INDICATION
     Route: 051
  14. KLYX [Concomitant]
     Indication: DRUG USE FOR UNKNOWN INDICATION
     Dosage: 1MG/ML + 250MG/ML
     Route: 054
  15. DIKLOFENAK MYLAN [Concomitant]
     Indication: DRUG USE FOR UNKNOWN INDICATION
     Route: 054
  16. SPASMOFEN [Concomitant]
     Indication: DRUG USE FOR UNKNOWN INDICATION
     Route: 054
  17. SPASMOFEN [Concomitant]
     Route: 058

REACTIONS (6)
  - DISEASE PROGRESSION [None]
  - DRUG RESISTANCE [None]
  - HYPERBILIRUBINAEMIA [None]
  - MANTLE CELL LYMPHOMA [None]
  - NEUTROPENIC SEPSIS [None]
  - TUMOUR FLARE [None]
